FAERS Safety Report 16976351 (Version 1)
Quarter: 2019Q4

REPORT INFORMATION
  Report Type: Spontaneous
  Country: US (occurrence: US)
  Receive Date: 20190914
  Receipt Date: 20190914
  Transmission Date: 20200122
  Serious: Yes (Hospitalization)
  Sender: FDA-Public Use
  Company Number: None

PATIENT
  Age: 60 Year
  Sex: Female
  Weight: 116 kg

DRUGS (4)
  1. DOXORUBICIN [Suspect]
     Active Substance: DOXORUBICIN
     Dates: end: 20190625
  2. PACLITAXEL. [Suspect]
     Active Substance: PACLITAXEL
     Dates: end: 20190828
  3. CYCLOPHOSAMIDE [Suspect]
     Active Substance: CYCLOPHOSPHAMIDE
     Dates: end: 20190625
  4. CARBOPLATIN. [Suspect]
     Active Substance: CARBOPLATIN
     Dates: end: 20190806

REACTIONS (17)
  - Ventricular extrasystoles [None]
  - Electrocardiogram ST-T change [None]
  - Mitral valve incompetence [None]
  - Electrocardiogram T wave abnormal [None]
  - QRS axis abnormal [None]
  - Left ventricular hypertrophy [None]
  - Dizziness [None]
  - Bundle branch block right [None]
  - Left ventricular dysfunction [None]
  - Neutropenia [None]
  - Chest pain [None]
  - Therapy cessation [None]
  - Lung disorder [None]
  - Neuropathy peripheral [None]
  - Dyspnoea exertional [None]
  - Laboratory test abnormal [None]
  - Myocardial infarction [None]

NARRATIVE: CASE EVENT DATE: 20190830
